FAERS Safety Report 19242790 (Version 1)
Quarter: 2021Q2

REPORT INFORMATION
  Report Type: Spontaneous
  Country: ES (occurrence: ES)
  Receive Date: 20210510
  Receipt Date: 20210510
  Transmission Date: 20210717
  Serious: Yes (Hospitalization, Other)
  Sender: FDA-Public Use
  Company Number: ES-AUROBINDO-AUR-APL-2021-019294

PATIENT
  Age: 68 Year
  Sex: Male

DRUGS (3)
  1. METAMIZOL [Suspect]
     Active Substance: METAMIZOLE SODIUM
     Indication: ANALGESIC THERAPY
     Dosage: 2 GRAM, 3 TIMES A DAY (2G CADA 8H)
     Route: 042
     Dates: start: 20210206, end: 20210223
  2. LINEZOLID. [Suspect]
     Active Substance: LINEZOLID
     Indication: POSTOPERATIVE WOUND INFECTION
     Dosage: 600 GRAM, TWO TIMES A DAY (600MG IV CADA 12H)
     Route: 042
     Dates: start: 20210214, end: 20210224
  3. PIPERACILLIN AND TAZOBACTAM [Suspect]
     Active Substance: PIPERACILLIN SODIUM\TAZOBACTAM SODIUM
     Indication: POSTOPERATIVE WOUND INFECTION
     Dosage: 4 GRAM, FOUR TIMES/DAY (4G IV CADA 6H)
     Route: 042
     Dates: start: 20210213, end: 20210220

REACTIONS (4)
  - Lymphadenopathy [Recovered/Resolved]
  - Cholestasis [Recovered/Resolved]
  - Drug reaction with eosinophilia and systemic symptoms [Recovered/Resolved]
  - Acute kidney injury [Recovered/Resolved]

NARRATIVE: CASE EVENT DATE: 20210216
